FAERS Safety Report 8246769-X (Version None)
Quarter: 2012Q1

REPORT INFORMATION
  Report Type: 
  Country: None (occurrence: None)
  Receive Date: 20120330
  Receipt Date: 20120323
  Transmission Date: 20120608
  Serious: Yes (Other)
  Sender: FDA-Public Use
  Company Number: US-PFIZER INC-2012009365

PATIENT
  Sex: Female

DRUGS (20)
  1. ADVAIR DISKUS 100/50 [Concomitant]
     Dosage: 250-50MCG, 2X/DAY (TAKE 1 PUFF BY INHALATION BID)
  2. AMILORIDE HYDROCHLORIDE [Concomitant]
     Dosage: 5 MG, DAILY (5 MG TAKE 1 DAILY)
     Route: 048
  3. LORAZEPAM [Concomitant]
     Dosage: 0.5 MG, UNK
     Route: 048
  4. OXYCONTIN [Concomitant]
     Dosage: 10MG, 1 EVERY 12 HOURS (FOR TOTAL OF 50MG BID)
     Route: 048
  5. FOLIC ACID [Concomitant]
     Dosage: 1 MG, UNK
     Route: 048
  6. TRAZODONE [Concomitant]
     Dosage: 100 MG, 1X/DAY (50MG 2 TABS QHS)
  7. CALCIUM CARBONATE [Concomitant]
     Dosage: UNK (200(500) MG TAKE 1 AS DIRECTED)
     Route: 048
  8. CYMBALTA [Concomitant]
     Dosage: 30 MG, UNK
     Route: 048
  9. LYRICA [Concomitant]
     Dosage: 50 MG, UNK
     Route: 048
  10. ONDANSETRON HYDROCHLORIDE [Concomitant]
     Indication: NAUSEA
     Dosage: 8 MG, AS NEEDED (8 MG TAKE 1 Q8H PRN)
     Route: 048
  11. XANAX [Concomitant]
     Indication: ANXIETY
     Dosage: 0.25 MG, 3X/DAY (0.25 MG TAKE 1 TID PRN)
     Route: 048
  12. LANSOPRAZOLE [Concomitant]
     Dosage: 30 MG, 1X/DAY (DISPENSE 90MG)
     Route: 048
  13. LASIX [Concomitant]
     Dosage: 20 MG, UNK
     Route: 048
  14. OXYCODONE HYDROCHLORIDE [Concomitant]
     Indication: PAIN
     Dosage: AS NEEDED (5 MG 1-2 PO Q 3HR PRN)
     Route: 048
  15. OXYCONTIN [Concomitant]
     Dosage: 10 MG, 2X/DAY
     Route: 048
  16. XALKORI [Suspect]
     Indication: NON-SMALL CELL LUNG CANCER
     Dosage: 250 MG, 2X/DAY
     Route: 048
     Dates: start: 20120102
  17. ESTRADIOL [Concomitant]
     Dosage: UNK 1.53/SPRAY DAILY
     Route: 061
  18. MEDROL [Concomitant]
     Dosage: 4 MG, UNK
     Route: 048
  19. OLOPATADINE HYDROCHLORIDE [Concomitant]
     Dosage: 0.2 %, AS NEEDED (0.2 % DROPS TAKE 1 DROP(S) O.U. (BOTH EYES) PRN)
     Route: 047
  20. SINGULAIR [Concomitant]
     Dosage: 10 MG, DAILY
     Route: 048

REACTIONS (10)
  - MALAISE [None]
  - OROPHARYNGEAL BLISTERING [None]
  - CONSTIPATION [None]
  - NAUSEA [None]
  - DRY MOUTH [None]
  - OESOPHAGEAL PAIN [None]
  - DYSPEPSIA [None]
  - INFLUENZA LIKE ILLNESS [None]
  - STOMATITIS [None]
  - OESOPHAGITIS [None]
